FAERS Safety Report 9321675 (Version 1)
Quarter: 2013Q2

REPORT INFORMATION
  Report Type: Report from Study
  Country: GB (occurrence: GB)
  Receive Date: 20130531
  Receipt Date: 20130531
  Transmission Date: 20140414
  Serious: Yes (Hospitalization)
  Sender: FDA-Public Use
  Company Number: GB-JNJFOC-20121212599

PATIENT
  Age: 73 Year
  Sex: Male
  Weight: 84.8 kg

DRUGS (9)
  1. ABIRATERONE ACETATE [Suspect]
     Indication: PROSTATE CANCER
     Route: 048
     Dates: start: 20121228
  2. ABIRATERONE ACETATE [Suspect]
     Indication: PROSTATE CANCER
     Route: 048
     Dates: start: 20121108, end: 20121221
  3. LEUPRORELIN ACETATE [Suspect]
     Indication: PROSTATE CANCER
     Route: 058
  4. LISINOPRIL [Suspect]
     Indication: HYPERTENSION
     Route: 048
     Dates: end: 2013
  5. LISINOPRIL [Suspect]
     Indication: HYPERTENSION
     Route: 048
     Dates: start: 2013
  6. ASPIRIN [Concomitant]
     Indication: PRODUCT USED FOR UNKNOWN INDICATION
     Route: 065
  7. ATORVASTATIN [Concomitant]
     Indication: PRODUCT USED FOR UNKNOWN INDICATION
     Route: 048
  8. LEVOTHYROXINE [Concomitant]
     Indication: PRODUCT USED FOR UNKNOWN INDICATION
     Route: 048
  9. PREDNISOLONE [Concomitant]
     Indication: PRODUCT USED FOR UNKNOWN INDICATION
     Route: 065

REACTIONS (1)
  - Dizziness [Recovered/Resolved with Sequelae]
